FAERS Safety Report 4376160-8 (Version None)
Quarter: 2004Q2

REPORT INFORMATION
  Report Type: 
  Country: None (occurrence: None)
  Receive Date: 20040609
  Receipt Date: 20040609
  Transmission Date: 20050107
  Serious: No
  Sender: FDA-Public Use
  Company Number: None

PATIENT
  Age: 42 Year
  Sex: Female
  Weight: 59 kg

DRUGS (1)
  1. SULFASALAZINE [Suspect]
     Dosage: 2 PO Q PM
     Route: 048
     Dates: start: 20040303, end: 20040304

REACTIONS (2)
  - RASH [None]
  - SKIN LESION [None]
